FAERS Safety Report 5928955-4 (Version None)
Quarter: 2008Q4

REPORT INFORMATION
  Report Type: 
  Country: None (occurrence: None)
  Receive Date: 20081020
  Receipt Date: 20081014
  Transmission Date: 20090506
  Serious: Yes (Life-Threatening)
  Sender: FDA-Public Use
  Company Number: TCI2008A05223

PATIENT
  Age: 65 Year
  Sex: Female

DRUGS (8)
  1. ACTOS [Suspect]
     Indication: DIABETES MELLITUS
     Dosage: 15 MG (15 MG, 1 D) PER ORAL
     Route: 048
     Dates: start: 20050713, end: 20080816
  2. METFORMIN HYDROCHLORIDE [Suspect]
     Dosage: PER ORAL
     Route: 048
  3. BASEN TABLETS 0.2 (VOGLIBOSE) [Concomitant]
  4. LASIX [Concomitant]
  5. OLMETEC (OLMESARTAN MEDOXOMIL) [Concomitant]
  6. GLYBURIDE [Concomitant]
  7. CALBLOCK (AZELNIDIPINE) [Concomitant]
  8. ASPIRIN [Concomitant]

REACTIONS (1)
  - PULMONARY ALVEOLAR HAEMORRHAGE [None]
